FAERS Safety Report 12313674 (Version 1)
Quarter: 2016Q2

REPORT INFORMATION
  Report Type: Spontaneous
  Country: US (occurrence: None)
  Receive Date: 20160427
  Receipt Date: 20160427
  Transmission Date: 20160815
  Serious: No
  Sender: FDA-Public Use
  Company Number: None

PATIENT
  Age: 81 Year
  Sex: Female
  Weight: 66.68 kg

DRUGS (3)
  1. ENOXAPARIN SODIUM INJECTION, USP 60MG/0.6ML [Suspect]
     Active Substance: ENOXAPARIN SODIUM
     Indication: THROMBOSIS
     Dosage: 60 MG/0.6 ML INJECTION IN MY STOMACH
     Dates: start: 20160221, end: 20160405
  2. VIT. B [Concomitant]
  3. VITAMIN B12 [Concomitant]
     Active Substance: CYANOCOBALAMIN

REACTIONS (4)
  - Cholecystitis [None]
  - Blood pressure increased [None]
  - Gingival bleeding [None]
  - Cholecystitis infective [None]

NARRATIVE: CASE EVENT DATE: 20160318
